FAERS Safety Report 17015110 (Version 1)
Quarter: 2019Q4

REPORT INFORMATION
  Report Type: Spontaneous
  Country: US (occurrence: US)
  Receive Date: 20191108
  Receipt Date: 20191108
  Transmission Date: 20200122
  Serious: Yes (Disabling)
  Sender: FDA-Public Use
  Company Number: None

PATIENT
  Sex: Male
  Weight: 112.5 kg

DRUGS (1)
  1. DICLOFENAC SOD DR 50 MG TAB [Suspect]
     Active Substance: DICLOFENAC SODIUM
     Indication: NEURALGIA
     Dosage: ?          QUANTITY:1 TABLET(S);OTHER FREQUENCY:3 PER DAY;?
     Route: 048
     Dates: start: 20190618, end: 20190628

REACTIONS (2)
  - Product substitution issue [None]
  - Constipation [None]
